FAERS Safety Report 8617562-0 (Version None)
Quarter: 2012Q3

REPORT INFORMATION
  Report Type: 
  Country: None (occurrence: None)
  Receive Date: 20120824
  Receipt Date: 20111114
  Transmission Date: 20120928
  Serious: No
  Sender: FDA-Public Use
  Company Number: US-ASTRAZENECA-2011SE69518

PATIENT
  Age: 59 Year
  Sex: Female

DRUGS (3)
  1. VIMOVO [Suspect]
     Route: 048
  2. SYMBICORT [Suspect]
     Route: 055
  3. PRILOSEC OTC [Suspect]
     Route: 048

REACTIONS (5)
  - REGURGITATION [None]
  - FIBROMYALGIA [None]
  - ROTATOR CUFF SYNDROME [None]
  - BONE PAIN [None]
  - ABDOMINAL DISCOMFORT [None]
